FAERS Safety Report 20954999 (Version 1)
Quarter: 2022Q2

REPORT INFORMATION
  Report Type: Spontaneous
  Country: GR (occurrence: GR)
  Receive Date: 20220614
  Receipt Date: 20220614
  Transmission Date: 20220720
  Serious: Yes (Life-Threatening, Hospitalization, Other)
  Sender: FDA-Public Use
  Company Number: None

PATIENT
  Age: 36 Year
  Sex: Male

DRUGS (4)
  1. KEPPRA [Suspect]
     Active Substance: LEVETIRACETAM
     Indication: Seizure
     Dosage: UNK
  2. NILOTINIB [Suspect]
     Active Substance: NILOTINIB
     Indication: Chronic myeloid leukaemia
     Dosage: 300 MILLIGRAM, 2X/DAY (BID)
     Dates: start: 20120925
  3. NILOTINIB [Suspect]
     Active Substance: NILOTINIB
     Dosage: 300 MG, BID
     Dates: start: 20121223
  4. GRANULOCYTE COLONY-STIMULATING FACTOR NOS [Concomitant]
     Active Substance: GRANULOCYTE COLONY-STIMULATING FACTOR NOS
     Indication: Product used for unknown indication
     Dosage: UNK
     Route: 065

REACTIONS (5)
  - Neutropenia [Unknown]
  - Pneumonia [Unknown]
  - Infectious pleural effusion [Unknown]
  - Myelodysplastic syndrome [Unknown]
  - Karyotype analysis abnormal [Unknown]

NARRATIVE: CASE EVENT DATE: 20121001
